FAERS Safety Report 8732294 (Version 2)
Quarter: 2016Q4

REPORT INFORMATION
  Report Type: Report from Study
  Country: US (occurrence: US)
  Receive Date: 20120820
  Receipt Date: 20161214
  Transmission Date: 20170207
  Serious: Yes (Hospitalization, Other)
  Sender: FDA-Public Use
  Company Number: US-ROCHE-1090020

PATIENT
  Age: 70 Year
  Sex: Female
  Weight: 55.5 kg

DRUGS (29)
  1. BEVACIZUMAB [Suspect]
     Active Substance: BEVACIZUMAB
     Route: 042
     Dates: start: 20120312
  2. BEVACIZUMAB [Suspect]
     Active Substance: BEVACIZUMAB
     Route: 042
     Dates: start: 20120924
  3. DASATINIB [Suspect]
     Active Substance: DASATINIB
     Route: 048
     Dates: start: 20120702
  4. DASATINIB [Suspect]
     Active Substance: DASATINIB
     Route: 048
     Dates: start: 20121022
  5. BEVACIZUMAB [Suspect]
     Active Substance: BEVACIZUMAB
     Route: 042
     Dates: start: 20120604
  6. BEVACIZUMAB [Suspect]
     Active Substance: BEVACIZUMAB
     Route: 042
     Dates: start: 20120730
  7. BEVACIZUMAB [Suspect]
     Active Substance: BEVACIZUMAB
     Route: 042
     Dates: start: 20120827
  8. DASATINIB [Suspect]
     Active Substance: DASATINIB
     Route: 048
     Dates: start: 20121119
  9. METOPROLOL. [Concomitant]
     Active Substance: METOPROLOL
  10. BEVACIZUMAB [Suspect]
     Active Substance: BEVACIZUMAB
     Route: 042
     Dates: start: 20121119
  11. DASATINIB [Suspect]
     Active Substance: DASATINIB
     Route: 048
     Dates: start: 20120507
  12. DASATINIB [Suspect]
     Active Substance: DASATINIB
     Route: 048
     Dates: start: 20120827
  13. BEVACIZUMAB [Suspect]
     Active Substance: BEVACIZUMAB
     Route: 042
     Dates: start: 20120507
  14. BEVACIZUMAB [Suspect]
     Active Substance: BEVACIZUMAB
     Route: 042
     Dates: start: 20121022
  15. DASATINIB [Suspect]
     Active Substance: DASATINIB
     Indication: NEOPLASM
     Dosage: 100 MG PO QD CYCLE 1,2 CYCLE=28 DAYS,SOB OCCURED DURING C3 ON 30/MAR/2012.DASATINIB WAS HELD BETWEEN
     Route: 048
     Dates: start: 20120109
  16. DASATINIB [Suspect]
     Active Substance: DASATINIB
     Route: 048
     Dates: start: 20120604
  17. GLIPIZIDE. [Concomitant]
     Active Substance: GLIPIZIDE
  18. BEVACIZUMAB [Suspect]
     Active Substance: BEVACIZUMAB
     Indication: NEOPLASM
     Dosage: 10 MG/KG OVER 30-90 MIN Q 2 WKS, CYCLE=28 DAYS (CYCLE2+) LAST DOSE ADMINISTERED ON 04/JUN/2012,C3 WA
     Route: 042
     Dates: start: 20120109
  19. DASATINIB [Suspect]
     Active Substance: DASATINIB
     Route: 048
     Dates: start: 20120924
  20. JANUVIA [Concomitant]
     Active Substance: SITAGLIPTIN PHOSPHATE
  21. LEVOTHYROXINE. [Concomitant]
     Active Substance: LEVOTHYROXINE
  22. TRIPLEX AD (UNITED STATES) [Concomitant]
  23. BEVACIZUMAB [Suspect]
     Active Substance: BEVACIZUMAB
     Route: 042
     Dates: start: 20120206
  24. BEVACIZUMAB [Suspect]
     Active Substance: BEVACIZUMAB
     Route: 042
     Dates: start: 20120409
  25. BEVACIZUMAB [Suspect]
     Active Substance: BEVACIZUMAB
     Route: 042
     Dates: start: 20120702
  26. DASATINIB [Suspect]
     Active Substance: DASATINIB
     Route: 048
     Dates: start: 20120206
  27. DASATINIB [Suspect]
     Active Substance: DASATINIB
     Route: 048
     Dates: start: 20120312
  28. DASATINIB [Suspect]
     Active Substance: DASATINIB
     Route: 048
     Dates: start: 20120409
  29. DASATINIB [Suspect]
     Active Substance: DASATINIB
     Route: 048
     Dates: start: 20120730

REACTIONS (3)
  - Small intestinal obstruction [Recovered/Resolved]
  - Urinary tract obstruction [Recovered/Resolved]
  - Dyspnoea [Unknown]

NARRATIVE: CASE EVENT DATE: 20120305
